FAERS Safety Report 5297367-1 (Version None)
Quarter: 2007Q2

REPORT INFORMATION
  Report Type: 
  Country: None (occurrence: None)
  Receive Date: 20070416
  Receipt Date: 20070403
  Transmission Date: 20071010
  Serious: Yes (Other)
  Sender: FDA-Public Use
  Company Number: PHEH2007US04763

PATIENT
  Age: 54 Year
  Sex: Female
  Weight: 72.562 kg

DRUGS (9)
  1. LIORESAL [Suspect]
     Indication: MUSCLE SPASMS
     Dates: end: 20010101
  2. COPAXONE [Concomitant]
  3. PROZAC [Concomitant]
  4. CALCIUM [Concomitant]
  5. NEURONTIN [Concomitant]
  6. VITAMINS [Concomitant]
  7. ASPIRIN [Concomitant]
  8. PREMARIN [Concomitant]
     Dates: start: 19900101, end: 20001001
  9. PROVERA [Concomitant]
     Dosage: UNK, UNK
     Dates: start: 19900101, end: 20001001

REACTIONS (2)
  - HEPATIC ENZYME INCREASED [None]
  - HEPATITIS [None]
